FAERS Safety Report 5959391-2 (Version None)
Quarter: 2008Q4

REPORT INFORMATION
  Report Type: 
  Country: None (occurrence: None)
  Receive Date: 20081120
  Receipt Date: 20080917
  Transmission Date: 20090506
  Serious: No
  Sender: FDA-Public Use
  Company Number: A0739876A

PATIENT
  Age: 78 Year
  Sex: Female

DRUGS (3)
  1. VERAMYST [Suspect]
     Indication: POSTNASAL DRIP
     Dosage: 1SPR AS REQUIRED
     Route: 045
     Dates: start: 20080701, end: 20080726
  2. AVALIDE [Concomitant]
  3. ZANTAC [Concomitant]

REACTIONS (2)
  - NASAL ULCER [None]
  - PRODUCT QUALITY ISSUE [None]
